FAERS Safety Report 13618143 (Version 3)
Quarter: 2018Q3

REPORT INFORMATION
  Report Type: Spontaneous
  Country: US (occurrence: US)
  Receive Date: 20170606
  Receipt Date: 20180710
  Transmission Date: 20181010
  Serious: Yes (Other)
  Sender: FDA-Public Use
  Company Number: US-BAYER-2017-105325

PATIENT
  Age: 31 Year
  Sex: Female
  Weight: 62.09 kg

DRUGS (1)
  1. MIRENA [Suspect]
     Active Substance: LEVONORGESTREL
     Indication: CONTRACEPTION
     Dosage: 20 MCG/24HR, CONT
     Route: 015
     Dates: start: 20110127, end: 20160229

REACTIONS (6)
  - Ectopic pregnancy with contraceptive device [Recovered/Resolved]
  - Abdominal pain [Recovered/Resolved]
  - Drug ineffective [None]
  - Haemorrhage in pregnancy [Recovered/Resolved]
  - Uterine perforation [Recovered/Resolved]
  - Device difficult to use [Recovered/Resolved]

NARRATIVE: CASE EVENT DATE: 201601
